FAERS Safety Report 7087258-8 (Version None)
Quarter: 2010Q4

REPORT INFORMATION
  Report Type: 
  Country: None (occurrence: None)
  Receive Date: 20101107
  Receipt Date: 20101027
  Transmission Date: 20110411
  Serious: Yes (Life-Threatening, Hospitalization)
  Sender: FDA-Public Use
  Company Number: GB-BRISTOL-MYERS SQUIBB COMPANY-13359146

PATIENT
  Age: 58 Year
  Sex: Female

DRUGS (2)
  1. METFORMIN HCL [Suspect]
     Indication: TYPE 2 DIABETES MELLITUS
     Route: 048
  2. ROFECOXIB [Interacting]
     Indication: OSTEOARTHRITIS
     Dosage: SINCE 1 MONTH
     Route: 048

REACTIONS (10)
  - ABDOMINAL PAIN [None]
  - DECREASED APPETITE [None]
  - DEPRESSED LEVEL OF CONSCIOUSNESS [None]
  - DIARRHOEA [None]
  - HYPOTENSION [None]
  - LACTIC ACIDOSIS [None]
  - NAUSEA [None]
  - POTENTIATING DRUG INTERACTION [None]
  - RENAL FAILURE ACUTE [None]
  - VOMITING [None]
